FAERS Safety Report 23604081 (Version 2)
Quarter: 2024Q2

REPORT INFORMATION
  Report Type: Spontaneous
  Country: US (occurrence: US)
  Receive Date: 20240307
  Receipt Date: 20240605
  Transmission Date: 20240715
  Serious: Yes (Death, Other)
  Sender: FDA-Public Use
  Company Number: US-BRISTOL-MYERS SQUIBB COMPANY-2024-036980

PATIENT
  Age: 49 Year
  Sex: Male

DRUGS (1)
  1. OPDIVO [Suspect]
     Active Substance: NIVOLUMAB
     Indication: Malignant urinary tract neoplasm
     Dosage: STRENGTH: 240 MG VIAL
     Route: 042
     Dates: start: 20230504

REACTIONS (1)
  - Death [Fatal]
